FAERS Safety Report 25062554 (Version 2)
Quarter: 2025Q1

REPORT INFORMATION
  Report Type: Report from Study
  Country: JP (occurrence: JP)
  Receive Date: 20250311
  Receipt Date: 20250317
  Transmission Date: 20250409
  Serious: Yes (Hospitalization)
  Sender: ROCHE
  Company Number: JP-CHUGAI-2025006795

PATIENT
  Age: 68 Year
  Sex: Male
  Weight: 74.1 kg

DRUGS (1)
  1. TECENTRIQ [Suspect]
     Active Substance: ATEZOLIZUMAB
     Indication: Non-small cell lung cancer
     Route: 042
     Dates: start: 20240516, end: 20241003

REACTIONS (2)
  - Hypophysitis [Not Recovered/Not Resolved]
  - Adrenal insufficiency [Not Recovered/Not Resolved]

NARRATIVE: CASE EVENT DATE: 20241001
